FAERS Safety Report 6383849-8 (Version None)
Quarter: 2009Q3

REPORT INFORMATION
  Report Type: 
  Country: None (occurrence: None)
  Receive Date: 20090929
  Receipt Date: 20090929
  Transmission Date: 20100115
  Serious: Yes (Hospitalization, Other)
  Sender: FDA-Public Use
  Company Number: None

PATIENT
  Age: 44 Year
  Sex: Female
  Weight: 100.6985 kg

DRUGS (4)
  1. ENBREL [Suspect]
     Indication: MIXED CONNECTIVE TISSUE DISEASE
     Dates: start: 19980101, end: 20000101
  2. ENBREL [Suspect]
     Dates: start: 20010601, end: 20090518
  3. METHOTREXATE INJECTABLE [Concomitant]
  4. PREDNISONE [Concomitant]

REACTIONS (7)
  - BLADDER SPASM [None]
  - HERPES ZOSTER [None]
  - MENIERE'S DISEASE [None]
  - MULTIPLE SCLEROSIS [None]
  - MUSCLE SPASMS [None]
  - OPTIC NEURITIS [None]
  - VERTIGO [None]
